FAERS Safety Report 13373866 (Version 1)
Quarter: 2017Q1

REPORT INFORMATION
  Report Type: Spontaneous
  Country: US (occurrence: US)
  Receive Date: 20170327
  Receipt Date: 20170327
  Transmission Date: 20170429
  Serious: Yes (Other)
  Sender: FDA-Public Use
  Company Number: None

PATIENT
  Age: 28 Year
  Sex: Male
  Weight: 78.75 kg

DRUGS (1)
  1. CIPROFLOAXIN [Suspect]
     Active Substance: CIPROFLOXACIN
     Route: 048

REACTIONS (5)
  - Tendon pain [None]
  - Tendonitis [None]
  - Neuralgia [None]
  - Muscle twitching [None]
  - Tendon rupture [None]
